FAERS Safety Report 4686393-9 (Version None)
Quarter: 2005Q2

REPORT INFORMATION
  Report Type: 
  Country: None (occurrence: None)
  Receive Date: 20050609
  Receipt Date: 20041104
  Transmission Date: 20051028
  Serious: Yes (Hospitalization)
  Sender: FDA-Public Use
  Company Number: ES-ROCHE-385240

PATIENT
  Age: 54 Year
  Sex: Male
  Weight: 66.2 kg

DRUGS (13)
  1. DACLIZUMAB [Suspect]
     Route: 042
     Dates: start: 20041018, end: 20041018
  2. DACLIZUMAB [Suspect]
     Route: 042
     Dates: end: 20041217
  3. MYCOPHENOLATE MOFETIL [Suspect]
     Route: 048
     Dates: start: 20041018, end: 20041018
  4. MYCOPHENOLATE MOFETIL [Suspect]
     Route: 048
  5. TACROLIMUS [Suspect]
     Route: 048
     Dates: start: 20041018, end: 20041018
  6. TACROLIMUS [Suspect]
     Route: 048
  7. STEROIDS NOS [Suspect]
     Dosage: FORM REPORTED AS VIAL.
     Route: 042
     Dates: start: 20041018, end: 20041018
  8. STEROIDS NOS [Suspect]
     Route: 048
  9. OMEPRAZOLE [Concomitant]
     Route: 048
     Dates: start: 20041018
  10. COTRIM [Concomitant]
     Dosage: DOSE REPORTED AS 80/400 DAILY.
     Route: 048
     Dates: start: 20041019
  11. ATENOLOL [Concomitant]
     Route: 048
     Dates: start: 20041024
  12. COTRIMOXAZOLE [Concomitant]
     Route: 048
     Dates: start: 20041019
  13. ATORVASTATINE [Concomitant]
     Dates: start: 20041202

REACTIONS (6)
  - CYTOMEGALOVIRUS INFECTION [None]
  - ISCHAEMIC STROKE [None]
  - PYREXIA [None]
  - URETERAL NECROSIS [None]
  - URINARY TRACT INFECTION [None]
  - UROGENITAL FISTULA [None]
